FAERS Safety Report 6550884-6 (Version None)
Quarter: 2010Q1

REPORT INFORMATION
  Report Type: 
  Country: None (occurrence: None)
  Receive Date: 20100125
  Receipt Date: 20100112
  Transmission Date: 20100710
  Serious: Yes (Hospitalization)
  Sender: FDA-Public Use
  Company Number: US-JNJFOC-20100108681

PATIENT
  Age: 65 Year
  Sex: Female
  Weight: 64.86 kg

DRUGS (21)
  1. TYLENOL (CAPLET) [Suspect]
     Route: 048
  2. TYLENOL (CAPLET) [Suspect]
     Indication: ARTHRALGIA
     Dosage: 1300 MG ^ALMOST EVERY DAY^
     Route: 048
  3. ISOSORBIDE MN [Concomitant]
     Indication: CORONARY ARTERY DISEASE
     Route: 065
  4. MELOXICAM [Concomitant]
     Indication: OSTEOARTHRITIS
     Route: 065
  5. PLAVIX [Concomitant]
     Indication: CORONARY ARTERY DISEASE
     Route: 065
  6. DILTIAZEM [Concomitant]
     Indication: CORONARY ARTERY DISEASE
     Route: 065
  7. DILTIAZEM [Concomitant]
     Indication: HYPERTENSION
     Route: 065
  8. RENESE [Concomitant]
     Indication: CORONARY ARTERY DISEASE
     Route: 065
  9. CRESTOR [Concomitant]
     Indication: BLOOD CHOLESTEROL INCREASED
     Dosage: 5 MG ONCE DAILY, TREATMENT INITIATION ^YEARS AGO^
     Route: 065
  10. ASPIRIN [Concomitant]
     Indication: CARDIOVASCULAR EVENT PROPHYLAXIS
     Dosage: 81 MG ONCE DAILY, TREATMENT INITIATION ^YEARS AGO^
     Route: 065
  11. NITROGLYCERIN [Concomitant]
     Indication: CHEST PAIN
     Dosage: 0.4 MG AS NEEDED, TREATMENT INITIATION ^YEARS AGO^
     Route: 065
  12. SINGULAIR [Concomitant]
     Indication: MULTIPLE ALLERGIES
     Dosage: 10 MG ONCE DAILY, TREATMENT INITIATION ^YEARS AGO^
     Route: 065
  13. ADVAIR DISKUS 100/50 [Concomitant]
     Indication: ASTHMA
     Dosage: 250/50 TWICE DAILY, TREAMENT INITIATION ^YEARS AGO^
     Route: 065
  14. ADVAIR DISKUS 100/50 [Concomitant]
     Indication: MULTIPLE ALLERGIES
     Dosage: 250/50 TWICE DAILY, TREAMENT INITIATION ^YEARS AGO^
     Route: 065
  15. ALLEGRA [Concomitant]
     Indication: MULTIPLE ALLERGIES
     Dosage: 180 MG ONCE DAILY, TREATMENT INITIATION ^YEARS AGO^
     Route: 065
  16. KLONOPIN [Concomitant]
     Indication: RESTLESS LEGS SYNDROME
     Dosage: 1 MG DAILY AT HOUR OF SLEEP, TREATMENT INITIATION ^YEARS AGO^.
     Route: 065
  17. FLUTICASONE PROPIONATE [Concomitant]
     Indication: MULTIPLE ALLERGIES
     Dosage: 2 SPRAYS AT HOUR OF SLEEP, TREATMENT INITIATION ^YEARS AGO^
     Route: 065
  18. PROTONIX [Concomitant]
     Indication: GASTROOESOPHAGEAL REFLUX DISEASE
     Dosage: 40 MG ONCE DAILY, TREATMENT INITIATION ^YEARS AGO^
     Route: 065
  19. LEVOXYL [Concomitant]
     Indication: HYPOTHYROIDISM
     Dosage: 75 MG ONCE DAILY, TREATMENT INITIATION ^YEARS AGO^
     Route: 065
  20. NITROFURANTOIN [Concomitant]
     Indication: URINARY TRACT INFECTION
     Dosage: 100 MG ONCE DAILY IN PM
     Route: 065
  21. ZOLPIDEM [Concomitant]
     Indication: SLEEP DISORDER THERAPY
     Route: 065

REACTIONS (4)
  - COLITIS ISCHAEMIC [None]
  - DIARRHOEA [None]
  - PRODUCT QUALITY ISSUE [None]
  - VOMITING [None]
